FAERS Safety Report 21365553 (Version 1)
Quarter: 2022Q3

REPORT INFORMATION
  Report Type: Report from Study
  Country: US (occurrence: US)
  Receive Date: 20220922
  Receipt Date: 20220922
  Transmission Date: 20221026
  Serious: Yes (Death, Hospitalization, Other)
  Sender: FDA-Public Use
  Company Number: US-GILEAD-2022-0595751

PATIENT
  Age: 84 Year
  Sex: Male
  Weight: 62.585 kg

DRUGS (1)
  1. AMBRISENTAN [Suspect]
     Active Substance: AMBRISENTAN
     Indication: Pulmonary arterial hypertension
     Dosage: 5 MG, QD
     Route: 048
     Dates: start: 20171109, end: 20201106

REACTIONS (7)
  - Death [Fatal]
  - Fall [Unknown]
  - Cardiac failure congestive [Unknown]
  - Pneumonia [Unknown]
  - Haemoglobin decreased [Unknown]
  - Dizziness [Unknown]
  - Asthenia [Unknown]

NARRATIVE: CASE EVENT DATE: 20201021
